FAERS Safety Report 24172129 (Version 1)
Quarter: 2024Q3

REPORT INFORMATION
  Report Type: Spontaneous
  Country: JP (occurrence: JP)
  Receive Date: 20240805
  Receipt Date: 20240805
  Transmission Date: 20241016
  Serious: Yes (Death, Hospitalization, Other)
  Sender: IPCA
  Company Number: JP-IPCA LABORATORIES LIMITED-IPC-2024-JP-001948

PATIENT

DRUGS (1)
  1. METFORMIN [Suspect]
     Active Substance: METFORMIN HYDROCHLORIDE
     Indication: Product used for unknown indication
     Dosage: 71 GRAM (2 GRAM PER DAY)
     Route: 048

REACTIONS (8)
  - Vasoplegia syndrome [Fatal]
  - Pulseless electrical activity [Fatal]
  - Lactic acidosis [Fatal]
  - Haemodynamic instability [Fatal]
  - Cardiac arrest [Fatal]
  - Hypoxic-ischaemic encephalopathy [Fatal]
  - Toxicity to various agents [Fatal]
  - Overdose [Fatal]
